FAERS Safety Report 6494105-1 (Version None)
Quarter: 2009Q4

REPORT INFORMATION
  Report Type: 
  Country: None (occurrence: None)
  Receive Date: 20091214
  Receipt Date: 20081230
  Transmission Date: 20100525
  Serious: No
  Sender: FDA-Public Use
  Company Number: US-BRISTOL-MYERS SQUIBB COMPANY-14458228

PATIENT
  Age: 54 Year
  Sex: Female

DRUGS (4)
  1. ABILIFY [Suspect]
     Dates: end: 20081229
  2. CLONAZEPAM [Concomitant]
  3. LEVOTHYROXINE SODIUM [Concomitant]
  4. AMBIEN CR [Concomitant]

REACTIONS (1)
  - TRANSAMINASES INCREASED [None]
